FAERS Safety Report 11449144 (Version 5)
Quarter: 2015Q4

REPORT INFORMATION
  Report Type: Report from Study
  Country: US (occurrence: US)
  Receive Date: 20150902
  Receipt Date: 20151118
  Transmission Date: 20160304
  Serious: Yes (Hospitalization)
  Sender: FDA-Public Use
  Company Number: US-ABBVIE-15P-163-1439184-00

PATIENT
  Age: 59 Year
  Sex: Male
  Weight: 99 kg

DRUGS (32)
  1. METOPROLOL [Concomitant]
     Active Substance: METOPROLOL
     Indication: HYPERTENSION
     Dosage: 25 MG EVERY EVENING
     Route: 048
     Dates: start: 20111013
  2. PREDNISONE. [Concomitant]
     Active Substance: PREDNISONE
     Route: 048
     Dates: start: 20150618
  3. PREDNISONE. [Concomitant]
     Active Substance: PREDNISONE
     Indication: RENAL TRANSPLANT
     Route: 048
     Dates: start: 20111108, end: 20150617
  4. LANTUS [Concomitant]
     Active Substance: INSULIN GLARGINE
     Indication: TYPE 2 DIABETES MELLITUS
     Route: 058
     Dates: start: 20141003
  5. OMEGA 3 [Concomitant]
     Active Substance: OMEGA-3 FATTY ACIDS
     Indication: SUPPLEMENTATION THERAPY
     Route: 048
     Dates: start: 20141003
  6. OXYCODONE [Concomitant]
     Active Substance: OXYCODONE
     Indication: ABDOMINAL PAIN
     Route: 048
     Dates: start: 20150801, end: 20150805
  7. RIBAVIRIN. [Suspect]
     Active Substance: RIBAVIRIN
     Indication: HEPATITIS C
     Dosage: BASELINE TOTAL DAILY DOSE DIVIDED TWICE DAILY: 600 MG
     Route: 048
     Dates: start: 20150715, end: 20150808
  8. TACROLIMUS. [Concomitant]
     Active Substance: TACROLIMUS
     Dosage: X 1 DOSE ONLY
     Dates: start: 20150811, end: 20150811
  9. NORVASC [Concomitant]
     Active Substance: AMLODIPINE BESYLATE
     Indication: HYPERTENSION
     Route: 048
     Dates: start: 20111027
  10. LANSOPRAZOLE. [Concomitant]
     Active Substance: LANSOPRAZOLE
     Indication: GASTROOESOPHAGEAL REFLUX DISEASE
     Route: 048
     Dates: start: 20130927
  11. TRAMADOL. [Concomitant]
     Active Substance: TRAMADOL
     Indication: BACK PAIN
     Dosage: 25MG EVERY MONTH AS REQUIRED
     Route: 048
     Dates: start: 20150528
  12. MAGNESIUM SULFATE. [Concomitant]
     Active Substance: MAGNESIUM SULFATE
     Indication: HYPOMAGNESAEMIA
     Route: 048
     Dates: start: 20150731, end: 20150805
  13. TACROLIMUS. [Concomitant]
     Active Substance: TACROLIMUS
     Dosage: X 1 DOSE ONLY
     Dates: start: 20150720, end: 20150720
  14. MYCOPHENOLATE MOFETIL. [Concomitant]
     Active Substance: MYCOPHENOLATE MOFETIL
     Indication: RENAL TRANSPLANT
     Route: 048
     Dates: start: 20111109, end: 20150617
  15. LOSARTAN. [Concomitant]
     Active Substance: LOSARTAN
     Indication: HYPERTENSION
     Route: 048
     Dates: start: 20141003, end: 20150617
  16. TACROLIMUS. [Concomitant]
     Active Substance: TACROLIMUS
     Dates: start: 20150715, end: 20150715
  17. MAGNESIUM OXIDE. [Concomitant]
     Active Substance: MAGNESIUM OXIDE
     Indication: SUPPLEMENTATION THERAPY
     Dates: start: 20121018
  18. ACETAMINOPHEN. [Concomitant]
     Active Substance: ACETAMINOPHEN
     Indication: BACK PAIN
     Dosage: 1000MG DAILY AS REQUIRED
     Route: 048
     Dates: start: 20141003
  19. ATORVASTATIN [Concomitant]
     Active Substance: ATORVASTATIN
     Indication: HYPERLIPIDAEMIA
     Dosage: SUMWF
     Dates: start: 20141003, end: 20150529
  20. CILOSTAZOL. [Concomitant]
     Active Substance: CILOSTAZOL
     Indication: INTERMITTENT CLAUDICATION
     Route: 048
     Dates: start: 20141003
  21. PRAVASTATIN [Concomitant]
     Active Substance: PRAVASTATIN\PRAVASTATIN SODIUM
     Indication: HYPERLIPIDAEMIA
     Dosage: 20MG AT BEDTIME
     Route: 048
     Dates: start: 20150529
  22. TACROLIMUS. [Concomitant]
     Active Substance: TACROLIMUS
     Dosage: X 1 DOSE ONLY
     Dates: start: 20150727, end: 20150727
  23. CHOLECALCIFEROL [Concomitant]
     Active Substance: CHOLECALCIFEROL
     Indication: SUPPLEMENTATION THERAPY
     Route: 048
     Dates: start: 20121011
  24. HYDRALAZINE [Concomitant]
     Active Substance: HYDRALAZINE HYDROCHLORIDE
     Indication: HYPERTENSION
     Route: 048
     Dates: start: 20141003
  25. NOVOLOG [Concomitant]
     Active Substance: INSULIN ASPART
     Indication: TYPE 2 DIABETES MELLITUS
     Dosage: TID AC
     Route: 058
     Dates: start: 20141003
  26. BAYERS ASPIRIN [Concomitant]
     Indication: BACK PAIN
     Dates: start: 20150528
  27. OMBITASVIR/PARITAPREVIR/RITONAVIR [Suspect]
     Active Substance: OMBITASVIR\PARITAPREVIR\RITONAVIR
     Indication: HEPATITIS C
     Dosage: 150/100/25 MG IN 1D
     Route: 048
     Dates: start: 20150715, end: 20150808
  28. DASABUVIR [Suspect]
     Active Substance: DASABUVIR
     Indication: HEPATITIS C
     Route: 048
     Dates: start: 20150715, end: 20150808
  29. TACROLIMUS. [Concomitant]
     Active Substance: TACROLIMUS
     Indication: IMMUNOSUPPRESSANT DRUG THERAPY
     Dates: start: 20141003, end: 20150715
  30. TACROLIMUS. [Concomitant]
     Active Substance: TACROLIMUS
     Dosage: X 1 DOSE ONLY
     Dates: start: 20150805, end: 20150805
  31. METOPROLOL [Concomitant]
     Active Substance: METOPROLOL
     Dosage: 50 MG QD AM
     Route: 048
     Dates: start: 20111013
  32. CELLCEPT [Concomitant]
     Active Substance: MYCOPHENOLATE MOFETIL\MYCOPHENOLATE MOFETIL HYDROCHLORIDE
     Indication: RENAL TRANSPLANT
     Route: 048
     Dates: start: 20150717, end: 20150809

REACTIONS (3)
  - Acute kidney injury [Not Recovered/Not Resolved]
  - Atypical pneumonia [Not Recovered/Not Resolved]
  - Acute respiratory failure [Recovered/Resolved]

NARRATIVE: CASE EVENT DATE: 20150801
